FAERS Safety Report 10035574 (Version 4)
Quarter: 2014Q2

REPORT INFORMATION
  Report Type: Spontaneous
  Country: BR (occurrence: BR)
  Receive Date: 20140325
  Receipt Date: 20140428
  Transmission Date: 20141212
  Serious: Yes (Hospitalization, Other)
  Sender: FDA-Public Use
  Company Number: BR-SA-2014SA035290

PATIENT
  Age: 71 Year
  Sex: Female
  Weight: 68 kg

DRUGS (9)
  1. LANTUS [Suspect]
     Indication: DIABETES MELLITUS
     Route: 058
     Dates: start: 201402
  2. LANTUS [Suspect]
     Indication: DIABETES MELLITUS
     Route: 058
     Dates: start: 20140324
  3. HYDROCHLOROTHIAZIDE [Concomitant]
     Indication: CARDIAC DISORDER
  4. SIMVASTATIN [Concomitant]
     Indication: CARDIAC DISORDER
     Dates: start: 2012
  5. AAS [Concomitant]
     Indication: CARDIAC DISORDER
     Dates: start: 2012
  6. CARVEDILOL [Concomitant]
     Indication: CARDIAC DISORDER
     Dates: start: 2012
  7. CLIKSTAR [Concomitant]
     Indication: DEVICE THERAPY
  8. DIOVAN [Concomitant]
     Indication: CARDIAC DISORDER
     Dates: start: 2012
  9. DEVICE NOS [Concomitant]
     Indication: DEVICE THERAPY

REACTIONS (5)
  - Pain in extremity [Recovering/Resolving]
  - Arthralgia [Recovered/Resolved]
  - Diabetes mellitus inadequate control [Not Recovered/Not Resolved]
  - Confusional state [Not Recovered/Not Resolved]
  - Hyperhidrosis [Not Recovered/Not Resolved]
